FAERS Safety Report 7501302 (Version 3)
Quarter: 2012Q4

REPORT INFORMATION
  Report Type: Spontaneous
  Country: US (occurrence: None)
  Receive Date: 20100712
  Receipt Date: 20120919
  Transmission Date: 20130627
  Serious: Yes (Death, Other)
  Sender: FDA-Public Use
  Company Number: 2010002622

PATIENT
  Age: 91 Year
  Sex: Female

DRUGS (1)
  1. TARCEVA [Suspect]
     Indication: LUNG NEOPLASM MALIGNANT
     Dosage: ORAL
     Route: 048

REACTIONS (11)
  - Respiratory failure [None]
  - Cardiac failure congestive [None]
  - Acute myocardial infarction [None]
  - Pericardial effusion [None]
  - Intracardiac thrombus [None]
  - Pericardial haemorrhage [None]
  - Hypertension [None]
  - Anaemia [None]
  - Leukocytosis [None]
  - Mental status changes [None]
  - Troponin increased [None]
